FAERS Safety Report 10634793 (Version 2)
Quarter: 2014Q4

REPORT INFORMATION
  Report Type: Spontaneous
  Country: JP (occurrence: JP)
  Receive Date: 20141205
  Receipt Date: 20141226
  Transmission Date: 20150529
  Serious: Yes (Other)
  Sender: FDA-Public Use
  Company Number: JP-MYLANLABS-2014M1008385

PATIENT

DRUGS (15)
  1. PROPOFOL INJECTION 1% ^MYLAN^ [Interacting]
     Active Substance: PROPOFOL
     Indication: INDUCTION OF ANAESTHESIA
     Dosage: 50 MG, UNK
     Route: 042
  2. AMOBARBITAL [Interacting]
     Active Substance: AMOBARBITAL
     Indication: DEPRESSION
     Route: 048
  3. THYROID HORMONES [Concomitant]
     Active Substance: UNSPECIFIED INGREDIENT
     Route: 048
  4. MYSLEE [Interacting]
     Active Substance: ZOLPIDEM TARTRATE
     Indication: DEPRESSION
     Route: 048
  5. DILTIAZEM HYDROCHLORIDE. [Interacting]
     Active Substance: DILTIAZEM HYDROCHLORIDE
     Indication: DEPRESSION
     Route: 048
  6. MILNACIPRAN HYDROCHLORIDE TABLETS 12.5MG ^MYLAN^ [Suspect]
     Active Substance: MILNACIPRAN HYDROCHLORIDE
     Indication: DEPRESSION
     Route: 048
  7. DONEPEZIL HYDROCHLORIDE TAB. 3MG ^MYLAN^ [Interacting]
     Active Substance: DONEPEZIL HYDROCHLORIDE
     Indication: DEPRESSION
     Route: 048
  8. ROCURONIUM BROMIDE. [Concomitant]
     Active Substance: ROCURONIUM BROMIDE
     Indication: INDUCTION OF ANAESTHESIA
     Dosage: 100 MG, UNK
     Route: 042
  9. DIURETICS [Concomitant]
     Active Substance: UNSPECIFIED INGREDIENT
     Route: 048
  10. BROMOVALERYLUREA ^HOEI^ [Interacting]
     Active Substance: BROMISOVAL
     Indication: DEPRESSION
     Route: 048
  11. ANTIHYPERLIPIDEMIC DRUG [Concomitant]
     Indication: HYPERLIPIDAEMIA
     Route: 048
  12. MIANSERIN [Interacting]
     Active Substance: MIANSERIN
     Indication: DEPRESSION
     Route: 048
  13. ANTIHYPERTENSIVE DRUGS [Concomitant]
     Active Substance: UNSPECIFIED INGREDIENT
     Indication: HYPERTENSION
     Route: 048
  14. STOMACH [Concomitant]
     Route: 048
  15. BROMAZEPAM [Interacting]
     Active Substance: BROMAZEPAM
     Indication: DEPRESSION
     Route: 048

REACTIONS (2)
  - Hypotension [Unknown]
  - Drug interaction [Unknown]
